FAERS Safety Report 19259636 (Version 2)
Quarter: 2022Q2

REPORT INFORMATION
  Report Type: Spontaneous
  Country: CO (occurrence: CO)
  Receive Date: 20210514
  Receipt Date: 20220516
  Transmission Date: 20220721
  Serious: Yes (Other)
  Sender: FDA-Public Use
  Company Number: CO-BAYER-2020-217122

PATIENT
  Age: 25 Year
  Sex: Female
  Weight: 72 kg

DRUGS (1)
  1. LEVONORGESTREL [Suspect]
     Active Substance: LEVONORGESTREL
     Indication: Contraception
     Route: 059
     Dates: start: 20181218, end: 20200922

REACTIONS (1)
  - Genital haemorrhage [Unknown]

NARRATIVE: CASE EVENT DATE: 20190220
